FAERS Safety Report 19257639 (Version 1)
Quarter: 2021Q2

REPORT INFORMATION
  Report Type: Spontaneous
  Country: US (occurrence: US)
  Receive Date: 20210513
  Receipt Date: 20210513
  Transmission Date: 20210717
  Serious: Yes (Hospitalization)
  Sender: FDA-Public Use
  Company Number: None

PATIENT
  Sex: Female

DRUGS (1)
  1. IBRANCE [Suspect]
     Active Substance: PALBOCICLIB
     Indication: BREAST CANCER
     Dosage: 125MG  DAILHY 21/28 DAYS ORAL
     Route: 048
     Dates: start: 20210414

REACTIONS (3)
  - Therapy change [None]
  - Malignant neoplasm progression [None]
  - Small intestinal obstruction [None]
